FAERS Safety Report 25050225 (Version 1)
Quarter: 2025Q1

REPORT INFORMATION
  Report Type: Spontaneous
  Country: US (occurrence: None)
  Receive Date: 20250306
  Receipt Date: 20250306
  Transmission Date: 20250409
  Serious: Yes (Hospitalization)
  Sender: FDA-CTU
  Company Number: None

PATIENT
  Age: 35 Year
  Sex: Male
  Weight: 84.6 kg

DRUGS (2)
  1. SEMAGLUTIDE [Suspect]
     Active Substance: SEMAGLUTIDE
     Indication: Obesity
     Route: 058
     Dates: start: 20240901, end: 20241213
  2. None! [Concomitant]

REACTIONS (5)
  - Pneumomediastinum [None]
  - Pancreatic disorder [None]
  - Biliary tract disorder [None]
  - Impaired gastric emptying [None]
  - Post procedural complication [None]

NARRATIVE: CASE EVENT DATE: 20241212
